FAERS Safety Report 7451230-6 (Version None)
Quarter: 2011Q2

REPORT INFORMATION
  Report Type: 
  Country: None (occurrence: None)
  Receive Date: 20110502
  Receipt Date: 20110420
  Transmission Date: 20111010
  Serious: No
  Sender: FDA-Public Use
  Company Number: US-MUTUAL PHARMACEUTICAL COMPANY, INC.-2010P1000945

PATIENT
  Sex: Male
  Weight: 76.726 kg

DRUGS (7)
  1. SULFAMETHOXAZOLE AND TRIMETHOPRIM DOUBLE STRENGTH [Suspect]
     Indication: SKIN INFECTION
     Route: 048
     Dates: start: 20100421, end: 20100501
  2. IBUPROFEN [Concomitant]
     Indication: PAIN
     Route: 048
     Dates: start: 20100421
  3. COLCHICINE [Concomitant]
     Indication: GOUT
     Route: 048
     Dates: start: 20100526
  4. PRISTIQ [Concomitant]
     Indication: ANXIETY
     Route: 065
     Dates: start: 20100101
  5. XANAX [Concomitant]
     Indication: ANXIETY
     Route: 065
  6. SULFAMETHOXAZOLE AND TRIMETHOPRIM DOUBLE STRENGTH [Suspect]
     Indication: CELLULITIS
     Route: 048
     Dates: start: 20100528, end: 20100607
  7. VICODIN [Concomitant]
     Indication: BACK PAIN
     Route: 065
     Dates: start: 20100528

REACTIONS (7)
  - SYSTEMIC LUPUS ERYTHEMATOSUS [None]
  - ORAL INFECTION [None]
  - NEUTROPENIA [None]
  - SINUSITIS [None]
  - CELLULITIS [None]
  - ANAEMIA [None]
  - GASTROINTESTINAL VIRAL INFECTION [None]
